FAERS Safety Report 9265381 (Version 1)
Quarter: 2013Q2

REPORT INFORMATION
  Report Type: Spontaneous
  Country: FR (occurrence: FR)
  Receive Date: 20130501
  Receipt Date: 20130501
  Transmission Date: 20140414
  Serious: Yes (Other)
  Sender: FDA-Public Use
  Company Number: PHHY2013FR042570

PATIENT
  Age: 53 Year
  Sex: Female

DRUGS (4)
  1. LEVOFLOXACIN SANDOZ [Suspect]
     Indication: CHRONIC SINUSITIS
     Dosage: 1 DF, QD
     Route: 048
     Dates: start: 20130327, end: 20130327
  2. FLANID GE [Concomitant]
  3. PIASCLEDINE [Concomitant]
  4. PROGESTERONE [Concomitant]

REACTIONS (7)
  - Hot flush [Recovered/Resolved]
  - Sleep disorder [Recovered/Resolved]
  - Nausea [Recovered/Resolved]
  - Abdominal pain upper [Recovered/Resolved]
  - Palpitations [Recovered/Resolved]
  - Anxiety [Recovered/Resolved]
  - Dizziness [Recovered/Resolved]
